FAERS Safety Report 13433592 (Version 7)
Quarter: 2018Q1

REPORT INFORMATION
  Report Type: Spontaneous
  Country: US (occurrence: US)
  Receive Date: 20170412
  Receipt Date: 20180216
  Transmission Date: 20180508
  Serious: Yes (Other)
  Sender: FDA-Public Use
  Company Number: PHEH2017US010670

PATIENT
  Age: 31 Year
  Sex: Female
  Weight: 72.56 kg

DRUGS (1)
  1. ZOFRAN [Suspect]
     Active Substance: ONDANSETRON HYDROCHLORIDE
     Indication: VOMITING IN PREGNANCY
     Dosage: 08 MG, UNK
     Route: 048
     Dates: start: 20050114, end: 200502

REACTIONS (5)
  - Product use in unapproved indication [Unknown]
  - Maternal exposure during pregnancy [Unknown]
  - Injury [Unknown]
  - Emotional distress [Unknown]
  - Premature delivery [Unknown]

NARRATIVE: CASE EVENT DATE: 20050820
